FAERS Safety Report 10018159 (Version 2)
Quarter: 2014Q2

REPORT INFORMATION
  Report Type: Spontaneous
  Country: US (occurrence: US)
  Receive Date: 20140318
  Receipt Date: 20140402
  Transmission Date: 20141212
  Serious: Yes (Other)
  Sender: FDA-Public Use
  Company Number: US-FRI-1000064678

PATIENT
  Sex: Female
  Weight: 72.5 kg

DRUGS (3)
  1. LEXAPRO [Suspect]
     Indication: DEPRESSION
     Dosage: 20MG
     Route: 048
     Dates: end: 201307
  2. TEMAZEPAM [Concomitant]
     Indication: ANXIETY
     Dosage: 7.5MG
  3. VITAMINS NOS [Concomitant]
     Indication: SUPPLEMENTATION THERAPY
     Dosage: DAILY

REACTIONS (2)
  - Colon cancer [Recovered/Resolved]
  - Drug ineffective [Recovered/Resolved]
